FAERS Safety Report 6347295-5 (Version None)
Quarter: 2009Q3

REPORT INFORMATION
  Report Type: 
  Country: None (occurrence: None)
  Receive Date: 20090910
  Receipt Date: 20090901
  Transmission Date: 20100115
  Serious: Yes (Other)
  Sender: FDA-Public Use
  Company Number: PHHY2009CA37666

PATIENT
  Age: 67 Year
  Sex: Female

DRUGS (1)
  1. FEMARA [Suspect]

REACTIONS (2)
  - INSOMNIA [None]
  - PSYCHOTIC DISORDER [None]
